FAERS Safety Report 7351536-5 (Version None)
Quarter: 2011Q1

REPORT INFORMATION
  Report Type: 
  Country: None (occurrence: None)
  Receive Date: 20110314
  Receipt Date: 20110304
  Transmission Date: 20110831
  Serious: Yes (Hospitalization)
  Sender: FDA-Public Use
  Company Number: US-RB-022864-11

PATIENT
  Age: 54 Year
  Sex: Male

DRUGS (2)
  1. SUBUTEX [Suspect]
     Indication: PAIN
     Dosage: DOSING INFORMATION UNKNOWN
     Route: 065
     Dates: start: 20080101
  2. BUPRENORPHINE HYDROCHLORIDE AND NALOXONE HYDROCHLORIDE [Suspect]
     Indication: PRODUCT USED FOR UNKNOWN INDICATION
     Dosage: DOSING INFORMATION UNKNOWN
     Route: 065

REACTIONS (4)
  - MYOCARDIAL INFARCTION [None]
  - DRY MOUTH [None]
  - TOOTH DISORDER [None]
  - OFF LABEL USE [None]
